FAERS Safety Report 5348072-4 (Version None)
Quarter: 2007Q2

REPORT INFORMATION
  Report Type: 
  Country: None (occurrence: None)
  Receive Date: 20070508
  Receipt Date: 20070102
  Transmission Date: 20071010
  Serious: Yes (Hospitalization)
  Sender: FDA-Public Use
  Company Number: 230043K07USA

PATIENT
  Age: 36 Year
  Sex: Female

DRUGS (21)
  1. REBIF [Suspect]
     Indication: MULTIPLE SCLEROSIS
     Dosage: SEE IMAGE
     Route: 058
     Dates: start: 20061218, end: 20061201
  2. REBIF [Suspect]
     Indication: MULTIPLE SCLEROSIS
     Dosage: SEE IMAGE
     Route: 058
     Dates: start: 20070106
  3. BACLOFEN [Concomitant]
  4. CELEBREX [Concomitant]
  5. PROVIGIL [Concomitant]
  6. TEMAZEPAM [Concomitant]
  7. KLONOPIN [Concomitant]
  8. COENZYME Q10 [Concomitant]
  9. CYBALTA (DULOXETINE) [Concomitant]
  10. LEVAQUIN [Concomitant]
  11. TRILEPTAL [Concomitant]
  12. MONOSODIUM GLUTAMATE (GLUTAMATE SODIUM) [Concomitant]
  13. OXYCONTIN [Concomitant]
  14. VITAMIN B12 [Concomitant]
  15. MIRALAX [Concomitant]
  16. ZELNORM [Concomitant]
  17. LYRICA [Concomitant]
  18. DILAUDID [Concomitant]
  19. AMBIEN [Concomitant]
  20. SENOKOT (SENNA ALEXANDRINA) [Concomitant]
  21. VITAMIN D [Concomitant]

REACTIONS (5)
  - HEMIPARESIS [None]
  - HYPOAESTHESIA [None]
  - INJECTION SITE ERYTHEMA [None]
  - MULTIPLE SCLEROSIS RELAPSE [None]
  - PAIN IN EXTREMITY [None]
